FAERS Safety Report 15889634 (Version 2)
Quarter: 2019Q1

REPORT INFORMATION
  Report Type: Spontaneous
  Country: US (occurrence: US)
  Receive Date: 20190130
  Receipt Date: 20190205
  Transmission Date: 20190417
  Serious: Yes (Hospitalization, Other)
  Sender: FDA-Public Use
  Company Number: US-ASTRAZENECA-2018SF14394

PATIENT
  Sex: Male

DRUGS (15)
  1. NEXIUM [Suspect]
     Active Substance: ESOMEPRAZOLE MAGNESIUM
     Dosage: 40.0MG UNKNOWN
     Route: 065
     Dates: start: 20100927
  2. FUROSEMIDE. [Concomitant]
     Active Substance: FUROSEMIDE
  3. LISINOPRIL. [Concomitant]
     Active Substance: LISINOPRIL
  4. MIDODRINE [Concomitant]
     Active Substance: MIDODRINE
  5. NEXIUM [Suspect]
     Active Substance: ESOMEPRAZOLE MAGNESIUM
     Route: 048
     Dates: start: 2000, end: 2016
  6. RIFAXIMIN. [Concomitant]
     Active Substance: RIFAXIMIN
     Route: 065
  7. DIAZEPAM. [Concomitant]
     Active Substance: DIAZEPAM
  8. BUMEX [Concomitant]
     Active Substance: BUMETANIDE
  9. OCTREOTIDE. [Concomitant]
     Active Substance: OCTREOTIDE
  10. AMILORIDE [Concomitant]
     Active Substance: AMILORIDE
  11. PRILOSEC [Suspect]
     Active Substance: OMEPRAZOLE MAGNESIUM
     Route: 048
     Dates: start: 2000, end: 2016
  12. INSULIN ASPART [Concomitant]
     Active Substance: INSULIN ASPART
  13. XIFAXAN [Concomitant]
     Active Substance: RIFAXIMIN
  14. GABAPENTIN. [Concomitant]
     Active Substance: GABAPENTIN
  15. CIPROFLOXACIN. [Concomitant]
     Active Substance: CIPROFLOXACIN

REACTIONS (3)
  - Acute kidney injury [Unknown]
  - Renal failure [Unknown]
  - Chronic kidney disease [Unknown]
